FAERS Safety Report 10032786 (Version 2)
Quarter: 2014Q2

REPORT INFORMATION
  Report Type: Spontaneous
  Country: FR (occurrence: FR)
  Receive Date: 20140324
  Receipt Date: 20140612
  Transmission Date: 20141212
  Serious: Yes (Death)
  Sender: FDA-Public Use
  Company Number: FR-ELI_LILLY_AND_COMPANY-FR201403007702

PATIENT
  Sex: 0

DRUGS (5)
  1. GEMCITABINE HYDROCHLORIDE [Suspect]
     Indication: GERM CELL CANCER METASTATIC
     Dosage: 1000 MG/M2, OTHER
  2. IFOSFAMIDE [Suspect]
     Indication: GERM CELL CANCER METASTATIC
     Dosage: 1200 MG/M2, OTHER
  3. CISPLATIN [Suspect]
     Indication: GERM CELL CANCER METASTATIC
     Dosage: 20 MG/M2, OTHER
  4. LENOGRASTIM [Concomitant]
     Indication: GRANULOCYTE COUNT DECREASED
     Dosage: 263 UG, OTHER
  5. MESNA [Concomitant]
     Indication: PROPHYLAXIS
     Dosage: 500 MG/M2, OTHER

REACTIONS (1)
  - Toxicity to various agents [Fatal]
